FAERS Safety Report 7639124-4 (Version None)
Quarter: 2011Q3

REPORT INFORMATION
  Report Type: 
  Country: None (occurrence: None)
  Receive Date: 20110727
  Receipt Date: 20110718
  Transmission Date: 20111222
  Serious: Yes (Death, Hospitalization)
  Sender: FDA-Public Use
  Company Number: US-ACTELION-A-NJ2011-51725

PATIENT

DRUGS (3)
  1. COUMADIN [Concomitant]
  2. TRACLEER [Suspect]
     Indication: PULMONARY ARTERIAL HYPERTENSION
     Dosage: 125 MG, BID
     Route: 048
     Dates: start: 20050101, end: 20110707
  3. REVATIO [Concomitant]

REACTIONS (5)
  - CONCOMITANT DISEASE PROGRESSION [None]
  - PULMONARY HYPERTENSION [None]
  - DISEASE PROGRESSION [None]
  - RESPIRATORY FAILURE [None]
  - PULMONARY FIBROSIS [None]
